FAERS Safety Report 9360958 (Version 1)
Quarter: 2013Q2

REPORT INFORMATION
  Report Type: Spontaneous
  Country: CA (occurrence: CA)
  Receive Date: 20130621
  Receipt Date: 20130621
  Transmission Date: 20140414
  Serious: Yes (Hospitalization)
  Sender: FDA-Public Use
  Company Number: CA-MYLANLABS-2013S1012886

PATIENT
  Age: 18 Year
  Sex: Female

DRUGS (3)
  1. PARACETAMOL [Suspect]
     Indication: OVERDOSE
     Dosage: REPORTED INGESTION OF 100G
     Route: 048
  2. IBUPROFEN [Suspect]
     Route: 048
  3. ALCOHOL [Suspect]
     Route: 048

REACTIONS (2)
  - Metabolic acidosis [Recovered/Resolved]
  - Overdose [Recovered/Resolved]
